FAERS Safety Report 22191321 (Version 1)
Quarter: 2023Q2

REPORT INFORMATION
  Report Type: Spontaneous
  Country: US (occurrence: None)
  Receive Date: 20230410
  Receipt Date: 20230410
  Transmission Date: 20230721
  Serious: Yes (Other)
  Sender: FDA-Public Use
  Company Number: US-ROCHE-3256000

PATIENT
  Age: 33 Year
  Sex: Male

DRUGS (1)
  1. HEMLIBRA [Suspect]
     Active Substance: EMICIZUMAB-KXWH
     Indication: Factor VIII deficiency
     Dosage: EVERY OL FORTNIGHT
     Route: 065
     Dates: start: 2018

REACTIONS (3)
  - Ligament sprain [Unknown]
  - Gait disturbance [Unknown]
  - Haemorrhage [Unknown]
